FAERS Safety Report 10879500 (Version 4)
Quarter: 2015Q2

REPORT INFORMATION
  Report Type: Spontaneous
  Country: RU (occurrence: RU)
  Receive Date: 20150302
  Receipt Date: 20150623
  Transmission Date: 20150821
  Serious: Yes (Disabling, Other)
  Sender: FDA-Public Use
  Company Number: RU-GILEAD-2015-0138712

PATIENT
  Age: 43 Year
  Sex: Male
  Weight: 84 kg

DRUGS (3)
  1. FINLEPSIN [Suspect]
     Active Substance: CARBAMAZEPINE
     Indication: HYPERTENSION
  2. TRUVADA [Suspect]
     Active Substance: EMTRICITABINE\TENOFOVIR DISOPROXIL FUMARATE
     Indication: HIV INFECTION
     Dosage: 1 DF, QD
     Route: 065
     Dates: start: 201408, end: 201502
  3. FINLEPSIN [Suspect]
     Active Substance: CARBAMAZEPINE
     Indication: EPILEPSY
     Dosage: UNK
     Route: 065
     Dates: start: 2014, end: 2015

REACTIONS (5)
  - Hypoaesthesia [Unknown]
  - Asphyxia [Unknown]
  - Muscular weakness [Recovered/Resolved]
  - Heart rate increased [Unknown]
  - Myopathy [Recovered/Resolved]

NARRATIVE: CASE EVENT DATE: 201408
